FAERS Safety Report 9894912 (Version 1)
Quarter: 2014Q1

REPORT INFORMATION
  Report Type: Spontaneous
  Country: US (occurrence: US)
  Receive Date: 20140213
  Receipt Date: 20140213
  Transmission Date: 20141002
  Serious: No
  Sender: FDA-Public Use
  Company Number: US-SA-2013SA136540

PATIENT
  Age: 65 Year
  Sex: Male

DRUGS (1)
  1. KYNAMRO [Suspect]
     Indication: HYPERLIPIDAEMIA
     Route: 065
     Dates: start: 20131203

REACTIONS (2)
  - Influenza like illness [Recovered/Resolved]
  - Pyrexia [Recovered/Resolved]
